FAERS Safety Report 8796456 (Version 2)
Quarter: 2012Q4

REPORT INFORMATION
  Report Type: Report from Study
  Country: US (occurrence: US)
  Receive Date: 20120919
  Receipt Date: 20121113
  Transmission Date: 20130627
  Serious: Yes (Other)
  Sender: FDA-Public Use
  Company Number: US-MPIJNJ-2012-06390

PATIENT
  Age: 68 Year
  Sex: Female
  Weight: 77.9 kg

DRUGS (10)
  1. VELCADE [Suspect]
     Indication: METASTATIC MALIGNANT MELANOMA
     Dosage: 1.0 mg/m2, Cyclic
     Route: 042
     Dates: start: 20120717, end: 20120828
  2. SORAFENIB [Suspect]
     Indication: METASTATIC MALIGNANT MELANOMA
     Dosage: 200 mg, bid
     Route: 048
     Dates: start: 20120717
  3. ATIVAN [Concomitant]
     Indication: ANXIETY
     Dosage: 1 mg, prn
     Route: 048
  4. ATIVAN [Concomitant]
     Indication: INSOMNIA
  5. MULTIVITAMIN                       /00831701/ [Concomitant]
     Indication: SUPPLEMENTATION THERAPY
  6. VITAMIN D3 [Concomitant]
     Indication: MEDICAL DIET
     Route: 048
  7. ONDANSETRON HYDROCHLORIDE [Concomitant]
     Indication: NAUSEA
     Dosage: 8 mg, prn
     Route: 048
  8. PROCHLORPERAZINE MALEATE [Concomitant]
     Indication: NAUSEA
     Dosage: 10 mg, prn
     Route: 048
  9. LOPRESSOR [Concomitant]
     Indication: PRODUCT USED FOR UNKNOWN INDICATION
     Dosage: 25 mg, bid
     Route: 048
  10. NIFEDIPINE [Concomitant]
     Indication: PRODUCT USED FOR UNKNOWN INDICATION
     Dosage: 60 mg, UNK
     Route: 048

REACTIONS (2)
  - Squamous cell carcinoma of skin [Not Recovered/Not Resolved]
  - Second primary malignancy [Not Recovered/Not Resolved]
